FAERS Safety Report 20518731 (Version 1)
Quarter: 2022Q1

REPORT INFORMATION
  Report Type: Spontaneous
  Country: JP (occurrence: JP)
  Receive Date: 20220225
  Receipt Date: 20220225
  Transmission Date: 20220424
  Serious: Yes (Death, Hospitalization, Other)
  Sender: FDA-Public Use
  Company Number: JP-MACLEODS PHARMACEUTICALS US LTD-MAC2022034533

PATIENT

DRUGS (8)
  1. LEVOFLOXACIN [Suspect]
     Active Substance: LEVOFLOXACIN
     Indication: Cutaneous tuberculosis
     Dosage: UNK
     Route: 065
  2. PYRAZINAMIDE [Suspect]
     Active Substance: PYRAZINAMIDE
     Indication: Cutaneous tuberculosis
     Dosage: UNK
     Route: 065
  3. ETHAMBUTOL [Suspect]
     Active Substance: ETHAMBUTOL HYDROCHLORIDE
     Indication: Cutaneous tuberculosis
     Dosage: UNK, FOR SEVERAL DAYS, DISCONTINUED 42 DAYS AFTER ADMISSION
     Route: 065
  4. ETHAMBUTOL [Suspect]
     Active Substance: ETHAMBUTOL HYDROCHLORIDE
     Dosage: UNK, 1 WEEKS
     Route: 065
  5. ISONIAZID [Suspect]
     Active Substance: ISONIAZID
     Indication: Cutaneous tuberculosis
     Dosage: UNK
     Route: 065
  6. ISONIAZID [Suspect]
     Active Substance: ISONIAZID
     Dosage: UNK, 1 WEEKS
     Route: 065
  7. RIFAMPIN [Suspect]
     Active Substance: RIFAMPIN
     Indication: Cutaneous tuberculosis
     Dosage: UNK, FOR SEVERAL DAYS, DISCONTINUED 42 DAYS AFTER ADMISSION
     Route: 065
  8. RIFAMPIN [Suspect]
     Active Substance: RIFAMPIN
     Dosage: UNK, 1 WEEKS,
     Route: 065

REACTIONS (8)
  - Skin ulcer [Fatal]
  - Immune reconstitution inflammatory syndrome [Fatal]
  - Diffuse large B-cell lymphoma [Fatal]
  - Epstein-Barr virus associated lymphoproliferative disorder [Fatal]
  - Staphylococcal infection [Fatal]
  - Cutaneous tuberculosis [Fatal]
  - Cellulitis [Fatal]
  - Nephropathy toxic [Unknown]
